FAERS Safety Report 4312455-1 (Version None)
Quarter: 2004Q1

REPORT INFORMATION
  Report Type: 
  Country: None (occurrence: None)
  Receive Date: 20040305
  Receipt Date: 20040226
  Transmission Date: 20041129
  Serious: Yes (Hospitalization)
  Sender: FDA-Public Use
  Company Number: FR-ROCHE-360110

PATIENT
  Age: 1 Hour
  Sex: Male
  Weight: 3 kg

DRUGS (2)
  1. VALIUM [Suspect]
     Dosage: FORM: INJECTABLE SOLUTION
     Dates: start: 20040201
  2. DIPRIVAN [Concomitant]
     Indication: GENERAL ANAESTHESIA
     Dosage: FORM: INJECTABLE SOLUTION.

REACTIONS (4)
  - APNOEA [None]
  - FEEDING PROBLEM IN NEWBORN [None]
  - MATERNAL DRUGS AFFECTING FOETUS [None]
  - NEONATAL APNOEIC ATTACK [None]
